FAERS Safety Report 8595987 (Version 3)
Quarter: 2014Q1

REPORT INFORMATION
  Report Type: Spontaneous
  Country: US (occurrence: US)
  Receive Date: 20120605
  Receipt Date: 20140109
  Transmission Date: 20141002
  Serious: Yes (Hospitalization, Disabling, Other)
  Sender: FDA-Public Use
  Company Number: US-ASTRAZENECA-2012SE34620

PATIENT
  Age: 20927 Day
  Sex: Female
  Weight: 94.8 kg

DRUGS (35)
  1. NEXIUM [Suspect]
     Indication: GASTROOESOPHAGEAL REFLUX DISEASE
     Route: 048
     Dates: start: 1999
  2. NEXIUM [Suspect]
     Indication: GASTROOESOPHAGEAL REFLUX DISEASE
     Route: 048
     Dates: start: 20110118
  3. NEXIUM [Suspect]
     Indication: GASTROOESOPHAGEAL REFLUX DISEASE
     Route: 048
     Dates: start: 20110622
  4. PRILOSEC [Suspect]
     Route: 048
     Dates: start: 1989
  5. ZANTAC [Concomitant]
     Dates: start: 2004
  6. TUMS [Concomitant]
  7. MYLANT [Concomitant]
  8. ROLAIDS [Concomitant]
     Dates: start: 1986
  9. METOPROLOL SUCCINATE [Concomitant]
     Indication: HYPERTENSION
     Route: 048
  10. RAMIPRIL [Concomitant]
     Indication: HYPERTENSION
  11. LEVOTHYROXINE [Concomitant]
     Indication: THYROID DISORDER
  12. LEVOTHYROXINE [Concomitant]
     Indication: THYROID DISORDER
  13. POTASSIUM CL ER [Concomitant]
     Indication: THYROID DISORDER
  14. EFFIENT [Concomitant]
     Indication: ANTICOAGULANT THERAPY
  15. ASPIRIN [Concomitant]
     Indication: CARDIAC DISORDER
  16. CRESTOR [Concomitant]
     Indication: BLOOD CHOLESTEROL ABNORMAL
     Route: 048
  17. VITAMIN D2 [Concomitant]
  18. CALCIUM [Concomitant]
  19. HYDROCODO-APAP [Concomitant]
     Dosage: 5-325
  20. HYDROCODO-APAP [Concomitant]
     Dosage: 10-650
  21. HYDROCODO-APAP [Concomitant]
     Dosage: 7.5-650
  22. TRAMADOL HCL [Concomitant]
  23. ALPRAZOLAM [Concomitant]
  24. ENOXAPARIN [Concomitant]
     Dosage: 40 MG/ 0.4 ML
  25. FERGON [Concomitant]
  26. GABAPENTIN [Concomitant]
  27. CYCLOBENZAPRINE [Concomitant]
  28. PROMETHAZINE [Concomitant]
  29. ENDOCET [Concomitant]
     Dosage: 10-325 MG
  30. PREDNISONE [Concomitant]
  31. LISINOPRIL-HCTZ [Concomitant]
     Dosage: 20-12.5 MG
  32. SIMVASTATIN [Concomitant]
  33. LYRICA [Concomitant]
  34. ISOSORBIDE MN [Concomitant]
  35. EFFEXOR [Concomitant]

REACTIONS (21)
  - Hip fracture [Unknown]
  - Intervertebral disc degeneration [Unknown]
  - Emotional disorder [Unknown]
  - Back injury [Unknown]
  - Adverse event [Unknown]
  - Coronary artery disease [Unknown]
  - Pneumonia [Unknown]
  - Dislocation of vertebra [Unknown]
  - Thyroid disorder [Unknown]
  - Osteoarthritis [Unknown]
  - Joint dislocation [Unknown]
  - Osteoporosis [Unknown]
  - Angina pectoris [Unknown]
  - Arthritis [Unknown]
  - Multiple fractures [Unknown]
  - Diabetes mellitus [Unknown]
  - Rheumatoid arthritis [Unknown]
  - Vitamin D deficiency [Unknown]
  - Depression [Unknown]
  - Spondylolisthesis [Unknown]
  - Lumbar spinal stenosis [Unknown]
